FAERS Safety Report 25444124 (Version 3)
Quarter: 2025Q3

REPORT INFORMATION
  Report Type: Report from Study
  Country: GB (occurrence: GB)
  Receive Date: 20250617
  Receipt Date: 20250929
  Transmission Date: 20251021
  Serious: Yes (Hospitalization, Other)
  Sender: SAMSUNG BIOEPIS
  Company Number: GB-SAMSUNG BIOEPIS-SB-2025-18276

PATIENT
  Age: 64 Year
  Sex: Female

DRUGS (1)
  1. ETANERCEPT [Suspect]
     Active Substance: ETANERCEPT
     Indication: Rheumatoid arthritis
     Route: 058

REACTIONS (9)
  - Pulmonary embolism [Unknown]
  - Pneumonia [Unknown]
  - Intraductal proliferative breast lesion [Unknown]
  - Arthralgia [Unknown]
  - Post procedural complication circulatory [Unknown]
  - Peripheral ischaemia [Unknown]
  - Conjunctivitis [Unknown]
  - Nasopharyngitis [Unknown]
  - Exposure to communicable disease [Unknown]

NARRATIVE: CASE EVENT DATE: 20230701
